FAERS Safety Report 17371068 (Version 4)
Quarter: 2020Q2

REPORT INFORMATION
  Report Type: Report from Study
  Country: None (occurrence: JP)
  Receive Date: 20200205
  Receipt Date: 20200518
  Transmission Date: 20200713
  Serious: Yes (Other)
  Sender: FDA-Public Use
  Company Number: JP-ABBVIE-19S-087-2683755-00

PATIENT
  Age: 67 Year
  Sex: Female
  Weight: 43 kg

DRUGS (18)
  1. DUODOPA [Suspect]
     Active Substance: CARBIDOPA\LEVODOPA
     Indication: PARKINSON^S DISEASE
     Dosage: MD: 9.0 ML, CD: 1.8 ML/HR ? 16 HRS
     Route: 050
     Dates: start: 20181220, end: 20181220
  2. DUODOPA [Suspect]
     Active Substance: CARBIDOPA\LEVODOPA
     Dosage: MD: 7.0 ML CD: 1.6 ML/HR ? 16 HRS ED: 1.0 ML/UNIT ? 3
     Route: 050
     Dates: start: 20190521
  3. CELECOXIB. [Concomitant]
     Active Substance: CELECOXIB
     Indication: PRODUCT USED FOR UNKNOWN INDICATION
     Route: 048
     Dates: start: 20190110, end: 20190129
  4. SHIUNKO [Concomitant]
     Indication: PRODUCT USED FOR UNKNOWN INDICATION
     Route: 061
     Dates: start: 20190319
  5. BOTULINUM TOXIN TYPE A [Concomitant]
     Active Substance: BOTULINUM TOXIN TYPE A
     Indication: PRODUCT USED FOR UNKNOWN INDICATION
     Route: 030
     Dates: start: 20190521, end: 20190521
  6. DUODOPA [Suspect]
     Active Substance: CARBIDOPA\LEVODOPA
     Dosage: MD: 4.0 ML, CD: 1.7 ML/HR ? 16 HRS
     Route: 050
     Dates: start: 20181220, end: 20190110
  7. DUODOPA [Suspect]
     Active Substance: CARBIDOPA\LEVODOPA
     Dosage: MD: 7.0 ML, CD: 1.7 ML/HR ? 16 HRS
     Route: 050
     Dates: start: 20190129, end: 20190219
  8. WHITE PETROLATUM [Concomitant]
     Active Substance: PETROLATUM
     Indication: PROPHYLAXIS
     Dosage: Q.S
     Route: 061
     Dates: start: 20190219
  9. DUODOPA [Suspect]
     Active Substance: CARBIDOPA\LEVODOPA
     Dosage: MD: 7.0 ML, CD: 1.5 ML/HR ? 16 HRS
     Route: 050
     Dates: start: 20190115, end: 20190129
  10. CLONAZEPAM. [Concomitant]
     Active Substance: CLONAZEPAM
     Indication: PRODUCT USED FOR UNKNOWN INDICATION
     Route: 048
  11. MINODRONIC ACID HYDRATE [Concomitant]
     Active Substance: MINODRONIC ACID
     Indication: PRODUCT USED FOR UNKNOWN INDICATION
     Dosage: 50 MG/MONTH
     Route: 048
  12. DUODOPA [Suspect]
     Active Substance: CARBIDOPA\LEVODOPA
     Dosage: MD: 7.0 ML CD: 1.6 ML/HR ? 16 HRS
     Route: 050
     Dates: start: 20190114, end: 20190115
  13. DUODOPA [Suspect]
     Active Substance: CARBIDOPA\LEVODOPA
     Dosage: MD: 7.0 ML CD: 1.8 ML/HR ? 16 HRS ED: 1.0 ML/UNIT ? 2
     Route: 050
     Dates: start: 20190219, end: 20190521
  14. ROTIGOTINE [Concomitant]
     Active Substance: ROTIGOTINE
     Indication: PARKINSON^S DISEASE
     Route: 062
  15. ALCLOMETASONE DIPROPIONATE. [Concomitant]
     Active Substance: ALCLOMETASONE DIPROPIONATE
     Indication: PRODUCT USED FOR UNKNOWN INDICATION
     Route: 061
     Dates: start: 20190319
  16. DUODOPA [Suspect]
     Active Substance: CARBIDOPA\LEVODOPA
     Dosage: MD: 7.0 ML, CD: 1.7 ML/HR ? 16 HRS
     Route: 050
     Dates: start: 20190110, end: 20190114
  17. LANSOPRAZOLE. [Concomitant]
     Active Substance: LANSOPRAZOLE
     Indication: PRODUCT USED FOR UNKNOWN INDICATION
     Route: 048
     Dates: start: 20190320, end: 20190416
  18. POVIDONE-IODINE W/SUCROSE [Concomitant]
     Indication: PRODUCT USED FOR UNKNOWN INDICATION
     Dosage: Q.S
     Route: 061
     Dates: start: 20190219

REACTIONS (9)
  - Stoma site infection [Recovering/Resolving]
  - Abdominal pain [Recovered/Resolved]
  - Abdominal pain upper [Recovering/Resolving]
  - Vitamin B6 deficiency [Recovered/Resolved]
  - Therapeutic product effect incomplete [Unknown]
  - Stoma site hypergranulation [Recovering/Resolving]
  - Muscle spasms [Recovering/Resolving]
  - Stoma site pain [Recovered/Resolved]
  - Bezoar [Recovered/Resolved]

NARRATIVE: CASE EVENT DATE: 2019
